FAERS Safety Report 24791923 (Version 1)
Quarter: 2024Q4

REPORT INFORMATION
  Report Type: Report from Study
  Country: US (occurrence: US)
  Receive Date: 20241231
  Receipt Date: 20241231
  Transmission Date: 20250114
  Serious: Yes (Other)
  Sender: JOHNSON AND JOHNSON
  Company Number: US-JNJFOC-20241254596

PATIENT
  Sex: Male

DRUGS (2)
  1. SPRAVATO [Suspect]
     Active Substance: ESKETAMINE
     Indication: Depression
     Dosage: ^56 MG, 8 TOTAL DOSES^
     Route: 045
     Dates: start: 20240917, end: 20241101
  2. SPRAVATO [Suspect]
     Active Substance: ESKETAMINE
     Dosage: ^84 MG, 4 TOTAL DOSES^
     Route: 045
     Dates: start: 20241107, end: 20241219

REACTIONS (2)
  - Neoplasm malignant [Unknown]
  - Viral infection [Unknown]

NARRATIVE: CASE EVENT DATE: 20240101
